FAERS Safety Report 5800496-4 (Version None)
Quarter: 2008Q3

REPORT INFORMATION
  Report Type: 
  Country: None (occurrence: None)
  Receive Date: 20080703
  Receipt Date: 20080624
  Transmission Date: 20090109
  Serious: Yes (Hospitalization, Disabling)
  Sender: FDA-Public Use
  Company Number: B0522428A

PATIENT
  Age: 81 Year
  Sex: Female
  Weight: 60 kg

DRUGS (3)
  1. ARIXTRA [Suspect]
     Indication: PHLEBITIS
     Dosage: 7.5MG PER DAY
     Route: 058
     Dates: start: 20080321, end: 20080326
  2. KARDEGIC [Suspect]
     Indication: ANGINA PECTORIS
     Route: 048
     Dates: end: 20080326
  3. LASIX [Concomitant]
     Route: 048

REACTIONS (5)
  - ANAEMIA [None]
  - HAEMATOMA [None]
  - HAEMORRHAGE [None]
  - WOUND [None]
  - WOUND NECROSIS [None]
